FAERS Safety Report 8078732-6 (Version None)
Quarter: 2012Q1

REPORT INFORMATION
  Report Type: 
  Country: None (occurrence: None)
  Receive Date: 20120124
  Receipt Date: 20120116
  Transmission Date: 20120608
  Serious: Yes (Life-Threatening, Other)
  Sender: FDA-Public Use
  Company Number: AUR-APL-2012-00542

PATIENT
  Age: 65 Year
  Sex: Male

DRUGS (4)
  1. LOPRESSOR (METOPROLOL TARTRATE) [10020772 - HYPERTENSION] [V.14.1] [Concomitant]
  2. AMLODIPINE (AMLODIPINE) [10020772 - HYPERTENSION] [V.14.1] [Concomitant]
  3. ASPIRIN (ACETYLSALICYLIC ACID) [10020772 - HYPERTENSION] [V.14.1] [Concomitant]
  4. BENAZEPRIL HYDROCHLORIDE [Suspect]
     Indication: HYPERTENSION

REACTIONS (5)
  - BLOOD IMMUNOGLOBULIN E INCREASED [None]
  - ANGIOEDEMA [None]
  - DYSPNOEA [None]
  - RASH ERYTHEMATOUS [None]
  - URTICARIA [None]
